FAERS Safety Report 8169907-6 (Version None)
Quarter: 2012Q1

REPORT INFORMATION
  Report Type: 
  Country: None (occurrence: None)
  Receive Date: 20120228
  Receipt Date: 20120222
  Transmission Date: 20120608
  Serious: Yes (Other)
  Sender: FDA-Public Use
  Company Number: US-PFIZER INC-2012049239

PATIENT
  Sex: Male
  Weight: 92.971 kg

DRUGS (10)
  1. ENBREL [Suspect]
     Dosage: UNK
  2. ATENOLOL [Concomitant]
     Dosage: 50 MG, DAILY
  3. MAVIK [Concomitant]
     Dosage: 4 MG, DAILY
  4. VIAGRA [Suspect]
     Dosage: UNK
  5. CELEBREX [Suspect]
     Dosage: UNK
  6. PREDNISONE [Concomitant]
     Dosage: 3 MG, DAILY
  7. CELEBREX [Suspect]
     Indication: RHEUMATOID ARTHRITIS
     Dosage: 200 MG, 2X/DAY
     Route: 048
  8. ZOLOFT [Suspect]
     Indication: ANXIETY
     Dosage: UNK
  9. VIAGRA [Suspect]
     Dosage: 100 MG, AS NEEDED
     Route: 048
  10. ZOLOFT [Suspect]
     Indication: DEPRESSION
     Dosage: 200 MG, 2X/DAY
     Route: 048

REACTIONS (1)
  - NEOPLASM MALIGNANT [None]
